FAERS Safety Report 9054868 (Version 3)
Quarter: 2013Q4

REPORT INFORMATION
  Report Type: Report from Study
  Country: JP (occurrence: JP)
  Receive Date: 20130208
  Receipt Date: 20131016
  Transmission Date: 20140711
  Serious: Yes (Life-Threatening)
  Sender: FDA-Public Use
  Company Number: JP-PFIZER INC-2012300951

PATIENT
  Age: 68 Year
  Sex: Female
  Weight: 36 kg

DRUGS (14)
  1. XALKORI [Suspect]
     Indication: NON-SMALL CELL LUNG CANCER
     Dosage: 250 MG, 2X/DAY
     Route: 048
     Dates: start: 20120602, end: 20120609
  2. XALKORI [Suspect]
     Dosage: 250 MG, 1X/DAY
     Route: 048
     Dates: start: 20120614, end: 20120627
  3. XALKORI [Suspect]
     Dosage: 200 MG, 2X/DAY
     Route: 048
     Dates: start: 20120628, end: 20120801
  4. RINDERON-VG [Concomitant]
     Dosage: UNK
     Route: 003
     Dates: start: 20120723, end: 20120723
  5. RINDERON [Concomitant]
     Dosage: UNK
     Route: 051
     Dates: start: 20120723, end: 20120723
  6. TARIVIT [Concomitant]
     Dosage: UNK
     Route: 001
     Dates: start: 20120723, end: 20120723
  7. HYALEIN [Concomitant]
     Dosage: UNK
     Route: 047
     Dates: start: 20120725, end: 20120725
  8. LOXONIN [Concomitant]
     Dosage: 60 MG, AS NEEDED
     Route: 048
     Dates: start: 20120725, end: 20120725
  9. MAGMITT [Concomitant]
     Dosage: 330 MG, 3X/DAY
     Route: 048
  10. HYPEN [Concomitant]
     Dosage: 200 MG, 2X/DAY
     Route: 048
  11. RISPERDAL [Concomitant]
     Dosage: 0.5 MG, AS NEEDED
     Route: 048
     Dates: start: 20120610
  12. ROZEREM [Concomitant]
     Dosage: 8 MG, 1X/DAY
     Route: 048
     Dates: start: 20120610, end: 20120801
  13. TAKEPRON OD [Concomitant]
     Dosage: 15 MG, 1X/DAY
     Route: 048
     Dates: start: 20120612
  14. LAXOBERON [Concomitant]
     Dosage: 10 ML, AS NEEDED
     Route: 048
     Dates: start: 20120617

REACTIONS (1)
  - Interstitial lung disease [Recovering/Resolving]
